FAERS Safety Report 7268806-1 (Version None)
Quarter: 2011Q1

REPORT INFORMATION
  Report Type: 
  Country: None (occurrence: None)
  Receive Date: 20110201
  Receipt Date: 20110124
  Transmission Date: 20110831
  Serious: Yes (Hospitalization)
  Sender: FDA-Public Use
  Company Number: GB-GENENTECH-312777

PATIENT
  Age: 64 Year
  Sex: Male

DRUGS (10)
  1. ASPIRIN [Concomitant]
     Indication: PRODUCT USED FOR UNKNOWN INDICATION
     Dosage: 75 MG, QD
     Route: 048
  2. ATORVASTATIN CALCIUM [Concomitant]
     Indication: PRODUCT USED FOR UNKNOWN INDICATION
     Dosage: 80 MG, QD
     Route: 048
  3. MABTHERA [Suspect]
     Indication: RHEUMATOID ARTHRITIS
     Dosage: 1 G, UNK
     Route: 042
     Dates: start: 20100310, end: 20100310
  4. MABTHERA [Suspect]
     Dosage: 1 G, UNK
     Route: 042
     Dates: start: 20101223, end: 20101223
  5. BISOPROLOL [Concomitant]
     Indication: PRODUCT USED FOR UNKNOWN INDICATION
     Dosage: 5 MG, QD
     Route: 048
  6. MABTHERA [Suspect]
     Dosage: 1 G, UNK
     Route: 042
     Dates: start: 20100406, end: 20100406
  7. MABTHERA [Suspect]
     Dosage: 1 G, UNK
     Route: 042
     Dates: start: 20101209, end: 20101209
  8. METHOTREXATE [Concomitant]
     Indication: PRODUCT USED FOR UNKNOWN INDICATION
     Dosage: 15 MG, 1/WEEK
     Route: 048
  9. NAPROXEN [Concomitant]
     Indication: PRODUCT USED FOR UNKNOWN INDICATION
     Dosage: 500 MG, BID
     Route: 048
  10. FOLIC ACID [Concomitant]
     Indication: PRODUCT USED FOR UNKNOWN INDICATION
     Dosage: 5 MG, QD
     Route: 048

REACTIONS (2)
  - ADVERSE REACTION [None]
  - ARTHRITIS [None]
